FAERS Safety Report 6301617-X (Version None)
Quarter: 2009Q3

REPORT INFORMATION
  Report Type: 
  Country: None (occurrence: None)
  Receive Date: 20090807
  Receipt Date: 20090729
  Transmission Date: 20100115
  Serious: Yes (Hospitalization)
  Sender: FDA-Public Use
  Company Number: US-NOVOPROD-289937

PATIENT
  Sex: Male

DRUGS (3)
  1. NOVOLOG [Suspect]
     Indication: TYPE 1 DIABETES MELLITUS
     Dosage: 35 IU, QD
     Route: 058
     Dates: start: 20070101
  2. NOVOLOG [Suspect]
     Dosage: SLIDING SCALE - PRN
     Route: 058
  3. NOVOLOG [Suspect]
     Dosage: 17 IU, QD
     Route: 058
     Dates: start: 20090728, end: 20090728

REACTIONS (3)
  - DEHYDRATION [None]
  - DIABETIC KETOACIDOSIS [None]
  - DRUG INEFFECTIVE [None]
